FAERS Safety Report 25225123 (Version 1)
Quarter: 2025Q2

REPORT INFORMATION
  Report Type: Spontaneous
  Country: US (occurrence: None)
  Receive Date: 20250422
  Receipt Date: 20250422
  Transmission Date: 20250716
  Serious: Yes (Hospitalization)
  Sender: FDA-CTU
  Company Number: None

PATIENT
  Age: 60 Year
  Sex: Female
  Weight: 92.3 kg

DRUGS (7)
  1. CISPLATIN [Suspect]
     Active Substance: CISPLATIN
     Dates: end: 20250408
  2. ALPRAZOLAM [Concomitant]
     Active Substance: ALPRAZOLAM
  3. GABAPENTIN [Concomitant]
     Active Substance: GABAPENTIN
  4. METHADONE [Concomitant]
     Active Substance: METHADONE HYDROCHLORIDE
  5. OLANZAPINE [Concomitant]
     Active Substance: OLANZAPINE
  6. ZOLPIDEM [Concomitant]
     Active Substance: ZOLPIDEM TARTRATE
  7. OXYCODONE [Concomitant]
     Active Substance: OXYCODONE

REACTIONS (3)
  - Lethargy [None]
  - Syncope [None]
  - Pulmonary embolism [None]

NARRATIVE: CASE EVENT DATE: 20250415
